FAERS Safety Report 19452989 (Version 1)
Quarter: 2021Q2

REPORT INFORMATION
  Report Type: Spontaneous
  Country: US (occurrence: US)
  Receive Date: 20210623
  Receipt Date: 20210623
  Transmission Date: 20210717
  Serious: Yes (Other)
  Sender: FDA-Public Use
  Company Number: US-SA-2021SA203102

PATIENT
  Age: 66 Year
  Sex: Female

DRUGS (4)
  1. FIASP [Concomitant]
     Active Substance: INSULIN ASPART
     Route: 065
  2. CORTISONE ACETATE. [Suspect]
     Active Substance: CORTISONE ACETATE
     Indication: LUPUS-LIKE SYNDROME
     Route: 065
  3. TRULICITY [Concomitant]
     Active Substance: DULAGLUTIDE
     Route: 065
  4. LANTUS SOLOSTAR [Suspect]
     Active Substance: INSULIN GLARGINE
     Indication: TYPE 2 DIABETES MELLITUS
     Dosage: 34 IU, QD
     Route: 065

REACTIONS (3)
  - Lupus-like syndrome [Unknown]
  - Blood glucose increased [Unknown]
  - Thyroid cancer [Unknown]

NARRATIVE: CASE EVENT DATE: 2005
